FAERS Safety Report 4729004-6 (Version None)
Quarter: 2005Q3

REPORT INFORMATION
  Report Type: 
  Country: None (occurrence: None)
  Receive Date: 20050729
  Receipt Date: 20050106
  Transmission Date: 20060218
  Serious: No
  Sender: FDA-Public Use
  Company Number: US-GLAXOSMITHKLINE-A0539657A

PATIENT
  Sex: Female

DRUGS (8)
  1. IMITREX [Suspect]
     Indication: MIGRAINE
     Dosage: 100MG AS REQUIRED
     Route: 048
  2. VERAPAMIL [Concomitant]
  3. TOPAMAX [Concomitant]
  4. PROPRANOLOL [Concomitant]
  5. SPIRONOLACTONE [Concomitant]
  6. CYCLOBENZAPRINE HCL [Concomitant]
  7. NORTRIPTYLINE HCL [Concomitant]
  8. HYDROCHLOROTHIAZIDE [Concomitant]

REACTIONS (1)
  - HYPERSENSITIVITY [None]
